FAERS Safety Report 5396378-5 (Version None)
Quarter: 2007Q3

REPORT INFORMATION
  Report Type: 
  Country: None (occurrence: None)
  Receive Date: 20070725
  Receipt Date: 20070719
  Transmission Date: 20080115
  Serious: Yes (Hospitalization)
  Sender: FDA-Public Use
  Company Number: HK-BAYER-200714144GDS

PATIENT
  Age: 84 Year
  Sex: Male

DRUGS (9)
  1. CIPROFLOXACIN [Suspect]
     Indication: PSEUDOMONAS INFECTION
     Dosage: UNIT DOSE: 500 MG
     Route: 065
  2. CIPROFLOXACIN [Suspect]
     Dosage: UNIT DOSE: 500 MG
     Route: 065
  3. AMPICILLIN [Suspect]
     Indication: WOUND INFECTION
     Route: 065
  4. CLOXACILLIN SODIUM [Suspect]
     Indication: WOUND INFECTION
     Route: 065
  5. ASPIRIN [Concomitant]
     Indication: DRUG USE FOR UNKNOWN INDICATION
     Route: 065
  6. FUROSEMIDE INTENSOL [Concomitant]
     Indication: DRUG USE FOR UNKNOWN INDICATION
     Route: 065
  7. ALLOPURINOL [Concomitant]
     Indication: DRUG USE FOR UNKNOWN INDICATION
     Route: 065
  8. CARVEDILOL [Concomitant]
     Indication: DRUG USE FOR UNKNOWN INDICATION
     Route: 065
  9. IRBESARTAN [Concomitant]
     Indication: DRUG USE FOR UNKNOWN INDICATION
     Route: 065

REACTIONS (4)
  - DYSARTHRIA [None]
  - DYSKINESIA [None]
  - EPIGASTRIC DISCOMFORT [None]
  - MASTICATION DISORDER [None]
